FAERS Safety Report 9093805 (Version 1)
Quarter: 2013Q1

REPORT INFORMATION
  Report Type: Spontaneous
  Country: US (occurrence: None)
  Receive Date: 20130214
  Receipt Date: 20130214
  Transmission Date: 20140127
  Serious: Yes (Hospitalization)
  Sender: FDA-Public Use
  Company Number: None

PATIENT
  Age: 60 Year
  Sex: Male

DRUGS (2)
  1. VENLAFAXINE [Suspect]
     Indication: RECTAL CANCER
     Route: 048
     Dates: start: 20121206, end: 20130123
  2. PLACEBO [Suspect]
     Indication: RECTAL CANCER
     Route: 048
     Dates: start: 20121206, end: 20130123

REACTIONS (1)
  - Device related infection [None]
